FAERS Safety Report 7748323-2 (Version None)
Quarter: 2011Q3

REPORT INFORMATION
  Report Type: 
  Country: None (occurrence: None)
  Receive Date: 20110913
  Receipt Date: 20110905
  Transmission Date: 20111222
  Serious: Yes (Other)
  Sender: FDA-Public Use
  Company Number: PHHY2011DE10968

PATIENT
  Age: 55 Year
  Sex: Male

DRUGS (4)
  1. CLOZAPINE [Suspect]
     Dosage: 100 MG, DAILY
     Dates: start: 20110201
  2. CLOZAPINE [Suspect]
     Indication: DELUSIONAL DISORDER, UNSPECIFIED TYPE
     Dosage: 175 MG, QD
     Route: 048
     Dates: start: 20101222, end: 20110201
  3. SOLIAN [Concomitant]
     Indication: DELUSIONAL DISORDER, UNSPECIFIED TYPE
     Dosage: 150 MG, QD
  4. SOLIAN [Concomitant]
     Dosage: 400 MG, DAILY

REACTIONS (4)
  - ASPHYXIA [None]
  - FATIGUE [None]
  - COUGH [None]
  - GASTROOESOPHAGEAL REFLUX DISEASE [None]
